FAERS Safety Report 22650279 (Version 1)
Quarter: 2023Q2

REPORT INFORMATION
  Report Type: Spontaneous
  Country: CA (occurrence: CA)
  Receive Date: 20230628
  Receipt Date: 20230628
  Transmission Date: 20230722
  Serious: Yes (Hospitalization)
  Sender: FDA-Public Use
  Company Number: CA-TAKEDA-2023TUS061438

PATIENT
  Sex: Male
  Weight: 98 kg

DRUGS (1)
  1. ICLUSIG [Suspect]
     Active Substance: PONATINIB
     Indication: Acute myeloid leukaemia
     Dosage: 30 MILLIGRAM
     Route: 048
     Dates: start: 202204

REACTIONS (3)
  - Infection [Unknown]
  - Blood disorder [Unknown]
  - Off label use [Unknown]
